FAERS Safety Report 4994936-0 (Version None)
Quarter: 2006Q2

REPORT INFORMATION
  Report Type: 
  Country: None (occurrence: None)
  Receive Date: 20060503
  Receipt Date: 20060419
  Transmission Date: 20061013
  Serious: Yes (Hospitalization, Other)
  Sender: FDA-Public Use
  Company Number: US017169

PATIENT
  Age: 58 Year
  Sex: Male
  Weight: 94.2575 kg

DRUGS (9)
  1. TIAGABINE HCL [Suspect]
     Indication: GENERALISED ANXIETY DISORDER
     Dosage: 6 MG BID ORAL
     Route: 048
     Dates: start: 20060104, end: 20060324
  2. TIAGABINE HCL [Suspect]
     Indication: GENERALISED ANXIETY DISORDER
     Dosage: 6 MG QD ORAL
     Route: 048
     Dates: start: 20060325, end: 20060325
  3. TIAGABINE HCL [Suspect]
     Indication: GENERALISED ANXIETY DISORDER
     Dosage: 6 MG BID ORAL
     Route: 048
     Dates: start: 20060326, end: 20060403
  4. BECONASE AQUA [Concomitant]
  5. VITAMIN SUPPLEMENTS [Concomitant]
  6. NASAL SALINE [Concomitant]
  7. ALEVE [Concomitant]
  8. NASACORT [Concomitant]
  9. GINKGO BILOBA [Concomitant]

REACTIONS (7)
  - DIPLOPIA [None]
  - DIZZINESS POSTURAL [None]
  - IIIRD NERVE DISORDER [None]
  - NEUROPATHY [None]
  - OPHTHALMOPLEGIA [None]
  - VISION BLURRED [None]
  - VISUAL FIELD DEFECT [None]
